FAERS Safety Report 14701356 (Version 1)
Quarter: 2018Q1

REPORT INFORMATION
  Report Type: Spontaneous
  Country: AU (occurrence: US)
  Receive Date: 20180330
  Receipt Date: 20180330
  Transmission Date: 20180509
  Serious: Yes (Hospitalization, Other)
  Sender: FDA-Public Use
  Company Number: AU-IMPAX LABORATORIES, INC-2018-IPXL-00988

PATIENT
  Age: 73 Year
  Sex: Male

DRUGS (1)
  1. SOTALOL HYDROCHLORIDE. [Suspect]
     Active Substance: SOTALOL HYDROCHLORIDE
     Indication: ATRIAL FIBRILLATION
     Dosage: UNK
     Route: 065

REACTIONS (8)
  - Abscess [Recovered/Resolved]
  - Atrioventricular block complete [Recovered/Resolved]
  - Endocarditis staphylococcal [Recovered/Resolved]
  - Vision blurred [Unknown]
  - Endocarditis [Recovered/Resolved]
  - Cerebral infarction [Unknown]
  - Renal impairment [Unknown]
  - Cerebrovascular accident [Recovered/Resolved]
